FAERS Safety Report 21279822 (Version 1)
Quarter: 2022Q3

REPORT INFORMATION
  Report Type: Spontaneous
  Country: US (occurrence: None)
  Receive Date: 20220831
  Receipt Date: 20220831
  Transmission Date: 20221026
  Serious: No
  Sender: FDA-Public Use
  Company Number: None

PATIENT
  Sex: Female
  Weight: 64.9 kg

DRUGS (7)
  1. CYCLOPHOSPHAMIDE [Suspect]
     Active Substance: CYCLOPHOSPHAMIDE
     Dates: end: 20220723
  2. CYTARABINE [Suspect]
     Active Substance: CYTARABINE
     Dates: end: 20220720
  3. SPRYCEL [Suspect]
     Active Substance: DASATINIB
     Dates: end: 20220809
  4. DEXAMETHASONE [Suspect]
     Active Substance: DEXAMETHASONE
     Dates: end: 20220723
  5. DOXORUBICIN HYDROCHLORIDE [Suspect]
     Active Substance: DOXORUBICIN HYDROCHLORIDE
     Dates: end: 20220723
  6. METHOTREXATE [Suspect]
     Active Substance: METHOTREXATE
     Dates: end: 20220727
  7. VINCRISTINE SULFATE [Suspect]
     Active Substance: VINCRISTINE SULFATE
     Dates: end: 20220730

REACTIONS (1)
  - Laboratory test [None]

NARRATIVE: CASE EVENT DATE: 20220730
